FAERS Safety Report 5946680-0 (Version None)
Quarter: 2008Q4

REPORT INFORMATION
  Report Type: 
  Country: None (occurrence: None)
  Receive Date: 20081110
  Receipt Date: 20080813
  Transmission Date: 20090506
  Serious: No
  Sender: FDA-Public Use
  Company Number: A0742432A

PATIENT
  Age: 2 Year
  Sex: Male

DRUGS (2)
  1. ALTABAX [Suspect]
     Indication: IMPETIGO
     Route: 061
     Dates: end: 20080811
  2. KEFLEX [Concomitant]
     Dates: start: 20080808

REACTIONS (4)
  - DRUG INEFFECTIVE [None]
  - IMPETIGO [None]
  - SCAB [None]
  - SKIN LESION [None]
